FAERS Safety Report 19100576 (Version 2)
Quarter: 2021Q2

REPORT INFORMATION
  Report Type: Report from Study
  Country: None (occurrence: NL)
  Receive Date: 20210407
  Receipt Date: 20210514
  Transmission Date: 20210717
  Serious: Yes (Hospitalization)
  Sender: FDA-Public Use
  Company Number: NL-ABBVIE-18S-114-2573319-00

PATIENT
  Age: 83 Year
  Sex: Male
  Weight: 79 kg

DRUGS (8)
  1. DUODOPA [Suspect]
     Active Substance: CARBIDOPA\LEVODOPA
     Dosage: MD 15.5 ML; CD 3.4 ML/HR; ED 2.0 ML.
     Route: 050
  2. MACROGOL [Concomitant]
     Active Substance: POLYETHYLENE GLYCOLS
     Indication: ABNORMAL FAECES
     Dosage: WHEN NEEDED
     Route: 065
  3. DUODOPA [Suspect]
     Active Substance: CARBIDOPA\LEVODOPA
     Dosage: MD: 15.5, CD: 3.2, ED: 2.0; 16 HOUR ADMINISTRATION, REMAINS AT 16
     Route: 050
  4. DUODOPA [Suspect]
     Active Substance: CARBIDOPA\LEVODOPA
     Dosage: MD 15.5ML, CD 3.9ML/H, ED 2.0ML
     Route: 050
  5. DUODOPA [Suspect]
     Active Substance: CARBIDOPA\LEVODOPA
     Dosage: MD 15.5, CD 3.6, ED 2.0, REMAINS AT 16
     Route: 050
  6. DUODOPA [Suspect]
     Active Substance: CARBIDOPA\LEVODOPA
     Dosage: MD: 15.5, CD: 3.6, ED: 2.0; 16 HOUR ADMINISTRATION
     Route: 050
  7. DUODOPA [Suspect]
     Active Substance: CARBIDOPA\LEVODOPA
     Indication: PARKINSON^S DISEASE
     Dosage: MD 15.5, CD 2.8, ED 2.0
     Route: 050
     Dates: start: 20181113
  8. DUODOPA [Suspect]
     Active Substance: CARBIDOPA\LEVODOPA
     Dosage: MD 15.5ML, CD 3.8ML/H, ED 2.0ML
     Route: 050

REACTIONS (38)
  - Speech disorder [Unknown]
  - Abnormal dreams [Recovered/Resolved]
  - Insomnia [Recovered/Resolved]
  - Device alarm issue [Unknown]
  - Nervous system disorder [Unknown]
  - Nausea [Not Recovered/Not Resolved]
  - Unevaluable event [Unknown]
  - Fibroma [Not Recovered/Not Resolved]
  - Mobility decreased [Not Recovered/Not Resolved]
  - Weight increased [Recovered/Resolved]
  - Stoma site discharge [Recovered/Resolved]
  - Poor quality sleep [Not Recovered/Not Resolved]
  - Decreased appetite [Recovered/Resolved]
  - Middle insomnia [Recovered/Resolved]
  - On and off phenomenon [Not Recovered/Not Resolved]
  - Fibroma [Recovered/Resolved]
  - Nocturia [Not Recovered/Not Resolved]
  - Fall [Recovered/Resolved]
  - Weight decreased [Recovered/Resolved]
  - Freezing phenomenon [Not Recovered/Not Resolved]
  - Device defective [Recovered/Resolved]
  - Visual impairment [Unknown]
  - Decreased appetite [Recovered/Resolved]
  - Gait disturbance [Not Recovered/Not Resolved]
  - Decreased appetite [Recovered/Resolved]
  - Abdominal distension [Not Recovered/Not Resolved]
  - Constipation [Recovered/Resolved]
  - Stoma site erythema [Recovered/Resolved]
  - Stoma site discharge [Recovered/Resolved]
  - Choking [Not Recovered/Not Resolved]
  - Fibroma [Unknown]
  - Bradykinesia [Not Recovered/Not Resolved]
  - Insomnia [Recovered/Resolved]
  - Unevaluable event [Not Recovered/Not Resolved]
  - Osteoarthritis [Not Recovered/Not Resolved]
  - Muscle rigidity [Unknown]
  - Stoma site infection [Recovered/Resolved]
  - Stoma site discharge [Recovered/Resolved]

NARRATIVE: CASE EVENT DATE: 2018
